FAERS Safety Report 12788487 (Version 2)
Quarter: 2016Q4

REPORT INFORMATION
  Report Type: Report from Study
  Country: BR (occurrence: BR)
  Receive Date: 20160928
  Receipt Date: 20161109
  Transmission Date: 20170207
  Serious: Yes (Hospitalization)
  Sender: FDA-Public Use
  Company Number: PHHY2015BR117174

PATIENT
  Sex: Male
  Weight: 75 kg

DRUGS (3)
  1. SANDOSTATIN LAR DEPOT [Suspect]
     Active Substance: OCTREOTIDE ACETATE
     Dosage: 30 MG, QMO (1 AMPOULE EVERY 28 DAYS)
     Route: 030
  2. SANDOSTATIN LAR DEPOT [Suspect]
     Active Substance: OCTREOTIDE ACETATE
     Indication: ACROMEGALY
     Dosage: 20 MG, UNK
     Route: 065
  3. CABERGOLINE. [Concomitant]
     Active Substance: CABERGOLINE
     Indication: ACROMEGALY
     Dosage: UNK (1 TABLET ON MONDAY AND 1 TABLET ON THRUSDAY)
     Route: 048
     Dates: start: 2012

REACTIONS (11)
  - Head discomfort [Unknown]
  - Dizziness [Unknown]
  - General physical health deterioration [Unknown]
  - Epistaxis [Recovering/Resolving]
  - Blood growth hormone increased [Unknown]
  - Pituitary tumour [Recovering/Resolving]
  - Weight decreased [Unknown]
  - Blood pressure increased [Unknown]
  - Drug effect decreased [Unknown]
  - Nasal congestion [Recovering/Resolving]
  - Headache [Unknown]
